FAERS Safety Report 8953152 (Version 3)
Quarter: 2013Q1

REPORT INFORMATION
  Report Type: Spontaneous
  Country: US (occurrence: US)
  Receive Date: 20121206
  Receipt Date: 20130206
  Transmission Date: 20140127
  Serious: Yes (Other)
  Sender: FDA-Public Use
  Company Number: US-BRISTOL-MYERS SQUIBB COMPANY-17162306

PATIENT
  Age: 61 Year
  Sex: Female
  Weight: 74.37 kg

DRUGS (24)
  1. ABATACEPT SUBQ INJECTION 125MG/ML [Suspect]
     Indication: RHEUMATOID ARTHRITIS
     Route: 058
     Dates: start: 2011
  2. ALBUTEROL [Concomitant]
  3. AMBIEN [Concomitant]
  4. COUMADIN [Concomitant]
  5. EFFEXOR [Concomitant]
  6. FERROUS SULFATE [Concomitant]
  7. FLEXERIL [Concomitant]
  8. FLUTICASONE [Concomitant]
  9. FOLIC ACID [Concomitant]
  10. GABAPENTIN [Concomitant]
  11. GLIMEPIRIDE [Concomitant]
  12. HYDROCHLOROTHIAZIDE [Concomitant]
  13. IPRATROPIUM [Concomitant]
  14. LISINOPRIL [Concomitant]
  15. LOVENOX [Concomitant]
  16. METHOTREXATE [Concomitant]
  17. NOVOLOG [Concomitant]
  18. NYSTATIN [Concomitant]
  19. PERCOCET [Concomitant]
  20. PROTONIX [Concomitant]
  21. REGLAN [Concomitant]
  22. VITAMIN D [Concomitant]
  23. ZOFRAN [Concomitant]
  24. ZOLOFT [Concomitant]

REACTIONS (1)
  - Bunion [Unknown]
